FAERS Safety Report 9163797 (Version 1)
Quarter: 2013Q1

REPORT INFORMATION
  Report Type: Spontaneous
  Country: FR (occurrence: FR)
  Receive Date: 20130314
  Receipt Date: 20130314
  Transmission Date: 20140127
  Serious: Yes (Death, Life-Threatening, Congenital Anomaly)
  Sender: FDA-Public Use
  Company Number: FR-PFIZER INC-033-0945-990024

PATIENT
  Sex: 0
  Weight: 3.5 kg

DRUGS (1)
  1. GABAPENTIN [Suspect]
     Indication: EPILEPSY
     Dosage: UNK
     Route: 064

REACTIONS (4)
  - Maternal exposure during pregnancy [Fatal]
  - Coarctation of the aorta [Fatal]
  - Heart disease congenital [Fatal]
  - Ventricular septal defect [Fatal]
